FAERS Safety Report 24866651 (Version 1)
Quarter: 2025Q1

REPORT INFORMATION
  Report Type: Spontaneous
  Country: US (occurrence: US)
  Receive Date: 20250121
  Receipt Date: 20250121
  Transmission Date: 20250409
  Serious: Yes (Life-Threatening, Hospitalization, Other)
  Sender: CHEPLAPHARM
  Company Number: US-CHEPLA-2025000769

PATIENT

DRUGS (3)
  1. CLONAZEPAM [Suspect]
     Active Substance: CLONAZEPAM
     Indication: Product used for unknown indication
     Route: 048
     Dates: start: 2023
  2. CLONAZEPAM [Suspect]
     Active Substance: CLONAZEPAM
     Indication: Product used for unknown indication
     Route: 048
  3. CLONAZEPAM [Suspect]
     Active Substance: CLONAZEPAM
     Indication: Product used for unknown indication
     Dosage: DAILY DOSE: 0.125 MILLIGRAM
     Route: 048

REACTIONS (12)
  - Delirium tremens [Unknown]
  - Tremor [Unknown]
  - Hallucination [Unknown]
  - Chest pain [Unknown]
  - Dyspnoea [Unknown]
  - Blindness [Unknown]
  - Aphasia [Unknown]
  - Seizure [Unknown]
  - Benzodiazepine drug level increased [Unknown]
  - Recalled product administered [Unknown]
  - Product packaging issue [Unknown]
  - Product quality issue [Unknown]

NARRATIVE: CASE EVENT DATE: 20240101
